FAERS Safety Report 9308689 (Version 1)
Quarter: 2013Q2

REPORT INFORMATION
  Report Type: Spontaneous
  Country: US (occurrence: US)
  Receive Date: 20130524
  Receipt Date: 20130524
  Transmission Date: 20140414
  Serious: No
  Sender: FDA-Public Use
  Company Number: US-NOVEN-13US006542

PATIENT
  Age: 54 Year
  Sex: Female

DRUGS (2)
  1. MINIVELLE [Suspect]
     Indication: HOT FLUSH
     Dosage: .1 MG, 2/WK
     Route: 062
     Dates: start: 201302, end: 20130325
  2. PROGESTERONE [Concomitant]
     Dosage: 100 UG, UNK

REACTIONS (3)
  - Mood swings [Unknown]
  - Depression [Unknown]
  - Menorrhagia [Unknown]
